FAERS Safety Report 8258467-7 (Version None)
Quarter: 2012Q2

REPORT INFORMATION
  Report Type: 
  Country: None (occurrence: None)
  Receive Date: 20120404
  Receipt Date: 20120328
  Transmission Date: 20120825
  Serious: Yes (Other)
  Sender: FDA-Public Use
  Company Number: US-PFIZER INC-2012079952

PATIENT
  Sex: Male
  Weight: 54.422 kg

DRUGS (3)
  1. RAPAMUNE [Suspect]
     Indication: RENAL TRANSPLANT
     Dosage: 2 MG DAILY
     Route: 048
     Dates: start: 20020101
  2. PROGRAF [Suspect]
     Indication: RENAL TRANSPLANT
     Dosage: 0.5 MG, 2X/DAY
     Dates: start: 20020101
  3. PREDNISONE TAB [Suspect]
     Dosage: UNK

REACTIONS (10)
  - SQUAMOUS CELL CARCINOMA [None]
  - CARDIAC FAILURE CONGESTIVE [None]
  - DIABETES MELLITUS [None]
  - TREMOR [None]
  - DIARRHOEA [None]
  - HEADACHE [None]
  - NAUSEA [None]
  - DECREASED APPETITE [None]
  - DRUG LEVEL ABOVE THERAPEUTIC [None]
  - ABDOMINAL DISCOMFORT [None]
